FAERS Safety Report 19586922 (Version 2)
Quarter: 2021Q3

REPORT INFORMATION
  Report Type: Spontaneous
  Country: US (occurrence: US)
  Receive Date: 20210720
  Receipt Date: 20210726
  Transmission Date: 20211014
  Serious: No
  Sender: FDA-Public Use
  Company Number: US-ORGANON-O2107USA001361

PATIENT
  Sex: Female
  Weight: 46.72 kg

DRUGS (1)
  1. NEXPLANON [Suspect]
     Active Substance: ETONOGESTREL
     Indication: CONTRACEPTION
     Dosage: 1 ROD (1 DOSAGE FORM), LEFT ARM
     Route: 059
     Dates: start: 2019, end: 20210712

REACTIONS (5)
  - Pain in extremity [Unknown]
  - Complication associated with device [Recovered/Resolved]
  - Device placement issue [Recovered/Resolved]
  - Paraesthesia [Unknown]
  - Complication of device removal [Recovered/Resolved]

NARRATIVE: CASE EVENT DATE: 2019
